FAERS Safety Report 8049205-1 (Version None)
Quarter: 2012Q1

REPORT INFORMATION
  Report Type: 
  Country: None (occurrence: None)
  Receive Date: 20120117
  Receipt Date: 20120109
  Transmission Date: 20120608
  Serious: Yes (Life-Threatening)
  Sender: FDA-Public Use
  Company Number: FR-JNJFOC-20120105072

PATIENT
  Sex: Female

DRUGS (3)
  1. KETOPROFEN [Suspect]
     Indication: PROCEDURAL PAIN
     Route: 048
     Dates: start: 20100121, end: 20100124
  2. ACETAMINOPHEN [Concomitant]
     Indication: PROCEDURAL PAIN
     Route: 048
     Dates: start: 20100121, end: 20100124
  3. TRAMADOL HCL [Suspect]
     Indication: PROCEDURAL PAIN
     Route: 048
     Dates: start: 20100121, end: 20100124

REACTIONS (10)
  - DEPRESSED LEVEL OF CONSCIOUSNESS [None]
  - HYPOVENTILATION [None]
  - ASTHENIA [None]
  - OVERDOSE [None]
  - DISORIENTATION [None]
  - RENAL FAILURE [None]
  - FAECALOMA [None]
  - RESPIRATORY ACIDOSIS [None]
  - HYPOTENSION [None]
  - MIOSIS [None]
